FAERS Safety Report 12927649 (Version 1)
Quarter: 2016Q4

REPORT INFORMATION
  Report Type: Spontaneous
  Country: US (occurrence: US)
  Receive Date: 20161109
  Receipt Date: 20161109
  Transmission Date: 20170207
  Serious: Yes (Hospitalization)
  Sender: FDA-Public Use
  Company Number: None

PATIENT
  Age: 92 Year
  Sex: Female
  Weight: 94.7 kg

DRUGS (21)
  1. LEVALBUTEROL. [Concomitant]
     Active Substance: LEVALBUTEROL
  2. METHYLPREDNISOLONE. [Concomitant]
     Active Substance: METHYLPREDNISOLONE
  3. FUROSEMIDE. [Concomitant]
     Active Substance: FUROSEMIDE
  4. KLOR-CON [Concomitant]
     Active Substance: POTASSIUM CHLORIDE
  5. HYDROCORTISONE. [Concomitant]
     Active Substance: HYDROCORTISONE
  6. CANCOMYCIN [Concomitant]
  7. LEVAQUIN [Concomitant]
     Active Substance: LEVOFLOXACIN
  8. METOPROLOL. [Concomitant]
     Active Substance: METOPROLOL
  9. ALBUTEROL. [Concomitant]
     Active Substance: ALBUTEROL
  10. LOSARTAN. [Concomitant]
     Active Substance: LOSARTAN
  11. ZOFRAN [Concomitant]
     Active Substance: ONDANSETRON HYDROCHLORIDE
  12. SYNTHROID [Concomitant]
     Active Substance: LEVOTHYROXINE SODIUM
  13. VESICARE [Suspect]
     Active Substance: SOLIFENACIN SUCCINATE
     Indication: URINARY INCONTINENCE
     Route: 048
  14. NOR EPINEPRINE [Concomitant]
  15. TIOTROPIUM [Concomitant]
     Active Substance: TIOTROPIUM
  16. WARFARIN [Concomitant]
     Active Substance: WARFARIN
  17. BREO ELLIPTA [Concomitant]
     Active Substance: FLUTICASONE FUROATE\VILANTEROL TRIFENATATE
  18. DILTIAZEM. [Concomitant]
     Active Substance: DILTIAZEM
  19. PIPERACILLIN [Concomitant]
     Active Substance: PIPERACILLIN
  20. LORAZEPAM. [Concomitant]
     Active Substance: LORAZEPAM
  21. FAMOTIDINE. [Concomitant]
     Active Substance: FAMOTIDINE

REACTIONS (3)
  - Pneumonia [None]
  - Sepsis [None]
  - Hepatic enzyme increased [None]

NARRATIVE: CASE EVENT DATE: 20161024
